FAERS Safety Report 5214099-6 (Version None)
Quarter: 2007Q1

REPORT INFORMATION
  Report Type: 
  Country: None (occurrence: None)
  Receive Date: 20070117
  Receipt Date: 20070108
  Transmission Date: 20070707
  Serious: Yes (Other)
  Sender: FDA-Public Use
  Company Number: 2007301642

PATIENT
  Sex: Female

DRUGS (1)
  1. BENADRYL [Suspect]
     Indication: HYPERSENSITIVITY
     Dosage: 25 MG, ORAL
     Route: 048
     Dates: start: 20070101

REACTIONS (5)
  - PRURITUS [None]
  - REACTION TO DRUG EXCIPIENTS [None]
  - SWELLING FACE [None]
  - SWOLLEN TONGUE [None]
  - URTICARIA GENERALISED [None]
